FAERS Safety Report 12473864 (Version 4)
Quarter: 2016Q4

REPORT INFORMATION
  Report Type: Report from Study
  Country: US (occurrence: US)
  Receive Date: 20160616
  Receipt Date: 20161026
  Transmission Date: 20170207
  Serious: Yes (Hospitalization)
  Sender: FDA-Public Use
  Company Number: US-SA-2016SA110935

PATIENT
  Age: 45 Year
  Sex: Female

DRUGS (1)
  1. LEMTRADA [Suspect]
     Active Substance: ALEMTUZUMAB
     Indication: MULTIPLE SCLEROSIS
     Route: 041
     Dates: start: 20160606, end: 20160608

REACTIONS (11)
  - Headache [Recovered/Resolved]
  - Speech disorder [Recovered/Resolved]
  - Heart rate increased [Unknown]
  - Thrombosis [Not Recovered/Not Resolved]
  - Abasia [Recovered/Resolved]
  - Blood pressure increased [Recovered/Resolved]
  - Mental impairment [Unknown]
  - Cerebrovascular accident [Recovered/Resolved]
  - Hemiparesis [Recovered/Resolved]
  - Intraventricular haemorrhage [Recovered/Resolved]
  - Vomiting [Recovered/Resolved]

NARRATIVE: CASE EVENT DATE: 201606
